FAERS Safety Report 9896251 (Version 2)
Quarter: 2014Q1

REPORT INFORMATION
  Report Type: Spontaneous
  Country: US (occurrence: US)
  Receive Date: 20140213
  Receipt Date: 20140213
  Transmission Date: 20141002
  Serious: No
  Sender: FDA-Public Use
  Company Number: US-BRISTOL-MYERS SQUIBB COMPANY-17433020

PATIENT
  Age: 72 Year
  Sex: Female
  Weight: 94.78 kg

DRUGS (2)
  1. ABATACEPT SUBQ INJECTION 125MG/ML [Suspect]
     Indication: RHEUMATOID ARTHRITIS
     Dosage: ORENCIA IV 1000 MG PREVIOUSLY USED AND STOPPED
     Dates: start: 20120222
  2. CELEBREX [Concomitant]

REACTIONS (2)
  - Arthralgia [Unknown]
  - Drug ineffective [Unknown]
